FAERS Safety Report 9211120 (Version 1)
Quarter: 2013Q2

REPORT INFORMATION
  Report Type: Spontaneous
  Country: NO (occurrence: NO)
  Receive Date: 20130404
  Receipt Date: 20130404
  Transmission Date: 20140414
  Serious: Yes (Other)
  Sender: FDA-Public Use
  Company Number: NO-ACTAVIS-2013-05616

PATIENT
  Age: 40 Year
  Sex: Female

DRUGS (4)
  1. OXALIPLATIN [Suspect]
     Indication: COLON CANCER METASTATIC
     Dosage: 85 MG/M2, ON DAY 1, EVERY SECOND WEEK
     Route: 042
  2. 5-FLUOROURACIL /00098801/ [Concomitant]
     Indication: COLON CANCER METASTATIC
     Dosage: 500 MG/M2, ON DAY 1 AND 2, EVERY SECOND WEEK
     Route: 042
  3. FOLINIC ACID [Concomitant]
     Indication: COLON CANCER METASTATIC
     Dosage: 60 MG/M2, ON DAY 1 AND 2, EVERY SECOND WEEK
     Route: 042
  4. PREDNISONE [Concomitant]
     Indication: PROPHYLAXIS OF NAUSEA AND VOMITING
     Dosage: 8 MG, PRIOR TO EACH OXALIPLATIN INFUSION
     Route: 042

REACTIONS (4)
  - Evans syndrome [Recovered/Resolved]
  - Thrombocytopenia [Recovered/Resolved]
  - Haemolytic anaemia [Recovered/Resolved]
  - Pyrexia [Recovered/Resolved]
